FAERS Safety Report 10483868 (Version 1)
Quarter: 2014Q3

REPORT INFORMATION
  Report Type: Spontaneous
  Country: US (occurrence: None)
  Receive Date: 20140929
  Receipt Date: 20140929
  Transmission Date: 20150326
  Serious: Yes (Disabling)
  Sender: FDA-Public Use
  Company Number: None

PATIENT
  Age: 10 Year
  Sex: Female
  Weight: 47.17 kg

DRUGS (1)
  1. LUPRON [Suspect]
     Active Substance: LEUPROLIDE ACETATE
     Indication: PRECOCIOUS PUBERTY
     Dosage: GIVEN INTO/UNDER THE SKIN
     Dates: start: 19950202, end: 20040801

REACTIONS (12)
  - Intentional self-injury [None]
  - Fear [None]
  - Pain [None]
  - Somnolence [None]
  - Depression [None]
  - Neck pain [None]
  - Back pain [None]
  - Pain in extremity [None]
  - Anxiety [None]
  - Injection site pain [None]
  - Arthralgia [None]
  - Poor quality sleep [None]

NARRATIVE: CASE EVENT DATE: 19950201
